FAERS Safety Report 7500287-2 (Version None)
Quarter: 2011Q2

REPORT INFORMATION
  Report Type: 
  Country: None (occurrence: None)
  Receive Date: 20110524
  Receipt Date: 20100503
  Transmission Date: 20111010
  Serious: No
  Sender: FDA-Public Use
  Company Number: US-NOVEN-ALL1-2010-02609

PATIENT

DRUGS (2)
  1. UNSPECIFIED SEASONAL ALLERGY PILL [Concomitant]
     Dosage: UNK MG, AS REQ'D
     Route: 048
  2. DAYTRANA [Suspect]
     Dosage: 10 MG, 1X/DAY:QD
     Route: 062
     Dates: start: 20100429

REACTIONS (1)
  - IRRITABILITY [None]
